FAERS Safety Report 4516657-0 (Version None)
Quarter: 2004Q4

REPORT INFORMATION
  Report Type: 
  Country: None (occurrence: None)
  Receive Date: 20041202
  Receipt Date: 20041122
  Transmission Date: 20050328
  Serious: Yes (Disabling)
  Sender: FDA-Public Use
  Company Number: US-MERCK-0411USA04088

PATIENT
  Sex: Female

DRUGS (1)
  1. VIOXX [Suspect]
     Route: 048
     Dates: start: 19991201, end: 20041001

REACTIONS (9)
  - ADVERSE EVENT [None]
  - ASTHENIA [None]
  - BACK DISORDER [None]
  - CARPAL TUNNEL SYNDROME [None]
  - DEPRESSION [None]
  - FIBROMYALGIA [None]
  - PAIN [None]
  - RHEUMATOID ARTHRITIS [None]
  - SJOGREN'S SYNDROME [None]
